FAERS Safety Report 25495055 (Version 1)
Quarter: 2025Q2

REPORT INFORMATION
  Report Type: Spontaneous
  Country: US (occurrence: US)
  Receive Date: 20250630
  Receipt Date: 20250630
  Transmission Date: 20250716
  Serious: Yes (Other)
  Sender: SK LIFE SCIENCE
  Company Number: US-SK LIFE SCIENCE,INC SKPVG-2025-001308

PATIENT

DRUGS (5)
  1. XCOPRI [Suspect]
     Active Substance: CENOBAMATE
     Indication: Seizure
     Route: 048
     Dates: start: 2024
  2. XCOPRI [Suspect]
     Active Substance: CENOBAMATE
     Dosage: 150 MILLIGRAM
     Route: 048
  3. XCOPRI [Suspect]
     Active Substance: CENOBAMATE
     Dosage: 200 MILLIGRAM EVERY DAY AT NIGHT
     Route: 048
     Dates: end: 202505
  4. TOPAMAX [Concomitant]
     Active Substance: TOPIRAMATE
     Indication: Product used for unknown indication
     Route: 065
  5. TRILEPTAL [Concomitant]
     Active Substance: OXCARBAZEPINE
     Indication: Product used for unknown indication
     Route: 065

REACTIONS (8)
  - Respiratory arrest [Recovered/Resolved]
  - Skin discolouration [Recovered/Resolved]
  - Generalised tonic-clonic seizure [Recovered/Resolved]
  - Seizure [Recovered/Resolved]
  - Seizure [Recovered/Resolved]
  - Somnolence [Recovered/Resolved]
  - Visual impairment [Recovered/Resolved]
  - Tremor [Recovered/Resolved]

NARRATIVE: CASE EVENT DATE: 20250301
